FAERS Safety Report 21360660 (Version 3)
Quarter: 2025Q2

REPORT INFORMATION
  Report Type: Report from Study
  Country: US (occurrence: US)
  Receive Date: 20220921
  Receipt Date: 20250428
  Transmission Date: 20250717
  Serious: Yes (Other)
  Sender: TAKEDA
  Company Number: US-TAKEDA-2022TUS065926

PATIENT
  Age: 23 Year
  Sex: Female
  Weight: 59 kg

DRUGS (14)
  1. PARATHYROID HORMONE [Suspect]
     Active Substance: PARATHYROID HORMONE
     Indication: Hypoparathyroidism
     Dosage: 50 MICROGRAM, QD
     Dates: start: 201509, end: 20170510
  2. PARATHYROID HORMONE [Suspect]
     Active Substance: PARATHYROID HORMONE
     Dosage: 75 MICROGRAM, QD
     Dates: start: 20170510, end: 20180413
  3. PARATHYROID HORMONE [Suspect]
     Active Substance: PARATHYROID HORMONE
     Dosage: 50 MICROGRAM, QD
     Dates: start: 20180413, end: 201909
  4. PARATHYROID HORMONE [Suspect]
     Active Substance: PARATHYROID HORMONE
     Dosage: 50 MICROGRAM, QD
     Dates: start: 20191123, end: 20191216
  5. PARATHYROID HORMONE [Suspect]
     Active Substance: PARATHYROID HORMONE
     Dosage: 100 MICROGRAM, QD
     Dates: start: 20191216
  6. PSYLLIUM [Concomitant]
     Active Substance: PLANTAGO SEED
     Indication: Supplementation therapy
     Dates: start: 20170510, end: 20201223
  7. LYSINE ACETATE [Concomitant]
     Active Substance: LYSINE ACETATE
     Indication: Supplementation therapy
  8. VALACYCLOVIR [Concomitant]
     Active Substance: VALACYCLOVIR HYDROCHLORIDE
     Indication: Herpes virus infection
  9. ESTRADIOL [Concomitant]
     Active Substance: ESTRADIOL
     Indication: Urethral meatus stenosis
     Route: 061
  10. CEFPODOXIME [Concomitant]
     Active Substance: CEFPODOXIME
     Indication: Pneumonia
     Dates: start: 20221214, end: 20221224
  11. ALBUTEROL [Concomitant]
     Active Substance: ALBUTEROL
     Indication: Pneumonia
  12. DOXYCYCLINE [Concomitant]
     Active Substance: DOXYCYCLINE
     Indication: Pneumonia
     Dates: start: 20221214, end: 20221224
  13. BENZONATATE [Concomitant]
     Active Substance: BENZONATATE
     Indication: Pneumonia
     Dates: start: 20221214, end: 20221221
  14. IBUPROFEN [Concomitant]
     Active Substance: IBUPROFEN

REACTIONS (2)
  - Nephrolithiasis [Recovered/Resolved]
  - Renal cyst [Recovered/Resolved]

NARRATIVE: CASE EVENT DATE: 20220101
